FAERS Safety Report 24460528 (Version 1)
Quarter: 2024Q4

REPORT INFORMATION
  Report Type: Report from Study
  Country: ZA (occurrence: ZA)
  Receive Date: 20241018
  Receipt Date: 20241018
  Transmission Date: 20250115
  Serious: No
  Sender: ROCHE
  Company Number: ZA-ROCHE-3571978

PATIENT
  Age: 46 Year
  Sex: Female
  Weight: 72.0 kg

DRUGS (1)
  1. RITUXIMAB [Suspect]
     Active Substance: RITUXIMAB
     Indication: Systemic lupus erythematosus
     Dosage: FREQUENCY 14 DAYS
     Route: 041

REACTIONS (2)
  - Off label use [Unknown]
  - Systemic lupus erythematosus [Unknown]
